FAERS Safety Report 5671672-9 (Version None)
Quarter: 2008Q1

REPORT INFORMATION
  Report Type: 
  Country: None (occurrence: None)
  Receive Date: 20080313
  Receipt Date: 20080219
  Transmission Date: 20080703
  Serious: Yes (Hospitalization)
  Sender: FDA-Public Use
  Company Number: 6040909

PATIENT
  Age: 68 Year
  Sex: Female

DRUGS (18)
  1. CONCOR  (BISOPROLOL FUMARATE) [Suspect]
     Indication: HYPERTONIA
     Dosage: 10 MG 5 MG AS NEEDED ORAL
     Route: 048
     Dates: start: 20030721, end: 20030722
  2. DIGIMERCK              (DIGITOXIN) [Suspect]
     Indication: TACHYARRHYTHMIA
     Dosage: 0,100 MG (0,1 MG, 1 IN 1 D) ORAL
     Route: 048
     Dates: start: 20030724
  3. DIGITOXIN                   (DIGITOXIN) [Suspect]
     Indication: TACHYARRHYTHMIA
     Dosage: (0,25 MG, 1-2X PER DAY AS NEEDED) INTRAVENOUS
     Route: 042
     Dates: start: 20030722, end: 20030723
  4. AMIODARONE HYDROCHLORIDE [Suspect]
     Indication: TACHYCARDIA
     Dosage: 200,0000 MG (200 MG, 1 IN 1 D) ORAL
     Route: 048
     Dates: start: 20030721, end: 20070722
  5. UNACID       (3 GRAM, SOLUTION FOR INJECTION) (SULTAMICILLIN TOSILATE) [Suspect]
     Indication: ERYSIPELAS
     Dosage: 9,00 GM (3 GM, 3 IN 1 D) INTRAVENOUS
     Route: 042
     Dates: start: 20030721, end: 20030728
  6. HEPARIN         (SOLUTION FOR INJECTION) (HEPARIN) [Suspect]
     Indication: THROMBOSIS PROPHYLAXIS
     Dosage: 5000 IU 25000 IU INTRAVENOUS
     Route: 042
     Dates: start: 20030721, end: 20030730
  7. AQUAPHOR     (XIPAMIDE) [Suspect]
     Indication: OEDEMA
     Dosage: 40MG 20MG 10MG ORAL
     Route: 048
     Dates: start: 20030721, end: 20030730
  8. UNAT          (10 MG) (TORASEMIDE) [Suspect]
     Indication: OEDEMA
     Dosage: (10 MG, 1-2X PER DAY AS NEEDED) ORAL
     Route: 048
     Dates: start: 20030721
  9. SILOMAT         (ORAL DROPS) (CLOBUTINOL HYDROCHLORIDE) [Suspect]
     Indication: COUGH
     Dosage: (20 GTT) ORAL
     Route: 048
     Dates: start: 20030722, end: 20030723
  10. KALINOR BT (EFFERVSCENT TABLET) (POTASSIUM CARBONATE, POTASSIUM CITRAT [Suspect]
     Indication: HYPOKALAEMIA
     Dosage: (1 DOSAGE FORMS, 4, 3, 2X1 PER DAY AS NEEDED) ORAL
     Route: 048
     Dates: start: 20030722, end: 20030724
  11. ZYLORIC        (300 MG ) (ALLOPURINOL) [Suspect]
     Indication: HYPERURICAEMIA
     Dosage: 300,0000 MG (300 MG, 1 IN 1 D) ORAL
     Route: 048
     Dates: start: 20030722
  12. DELIX PLUS       (HYDROCHLOROTHIAZIDE, RAMIPRIL) [Suspect]
     Indication: HYPERTONIA
     Dosage: 2,500 MG (2,5 MG, 1 IN 1 D) ORAL
     Route: 048
     Dates: start: 20030722
  13. PLANUM MITE (TEMAZEPAM) [Suspect]
     Indication: INSOMNIA
     Dosage: 1,000 DOSAGE FORMS (1 DOSAGE FORMS, 1 IN 1 D) ORAL
     Route: 048
     Dates: start: 20030724, end: 20030727
  14. SPIRONOLACTONE [Suspect]
     Indication: OEDEMA
     Dosage: 50MG 25MG ORAL
     Route: 048
     Dates: start: 20030724
  15. MARCUMAR [Suspect]
     Indication: THROMBOSIS PROPHYLAXIS
     Dosage: ORAL
     Route: 048
     Dates: start: 20030728
  16. METOPROLOL TARTRATE [Concomitant]
  17. FUROSEMIDE [Concomitant]
  18. VALERIAN TINCTURE (VALERIANA OFFICINALIS TINCTURE) [Concomitant]

REACTIONS (1)
  - STEVENS-JOHNSON SYNDROME [None]
